FAERS Safety Report 17787673 (Version 3)
Quarter: 2021Q1

REPORT INFORMATION
  Report Type: Report from Study
  Country: GB (occurrence: GB)
  Receive Date: 20200515
  Receipt Date: 20210318
  Transmission Date: 20210419
  Serious: Yes (Death, Hospitalization)
  Sender: FDA-Public Use
  Company Number: GB-ROCHE-2588330

PATIENT
  Age: 76 Year
  Sex: Male

DRUGS (15)
  1. BEVACIZUMAB. [Suspect]
     Active Substance: BEVACIZUMAB
     Indication: MESOTHELIOMA
     Dosage: 400 MG/16 ML
     Route: 042
     Dates: start: 20191231, end: 20200324
  2. SEREVENT DISKUS [Concomitant]
     Active Substance: SALMETEROL XINAFOATE
     Dates: start: 1988
  3. CARBOPLATIN. [Suspect]
     Active Substance: CARBOPLATIN
     Indication: MESOTHELIOMA
     Dosage: 4?6 CYCLES
     Route: 042
     Dates: start: 20191231, end: 20200324
  4. DOXYCYCLINE. [Concomitant]
     Active Substance: DOXYCYCLINE
  5. PIPERACILLIN/TAZOBACTAM [Concomitant]
     Active Substance: PIPERACILLIN SODIUM\TAZOBACTAM SODIUM
  6. METRONIDAZOLE. [Concomitant]
     Active Substance: METRONIDAZOLE
  7. CARBOCISTEINE [Concomitant]
     Active Substance: CARBOCYSTEINE
     Dates: start: 201901
  8. PEMETREXED. [Suspect]
     Active Substance: PEMETREXED
     Indication: MESOTHELIOMA
     Dosage: 4?6 CYCLES
     Route: 042
     Dates: start: 20191231, end: 20200303
  9. MORPHINE SULPHATE [Concomitant]
     Active Substance: MORPHINE SULFATE
     Dates: start: 20200503, end: 20200506
  10. ATEZOLIZUMAB. [Suspect]
     Active Substance: ATEZOLIZUMAB
     Indication: MESOTHELIOMA
     Dosage: 1200 MG/ 20 ML
     Route: 041
     Dates: start: 20191231, end: 20200324
  11. DEXAMETHASONE. [Concomitant]
     Active Substance: DEXAMETHASONE
  12. MORPHINE SULPHATE [Concomitant]
     Active Substance: MORPHINE SULFATE
  13. FOSTAIR [Concomitant]
     Active Substance: BECLOMETHASONE\FORMOTEROL
     Dates: start: 1988
  14. GENTAMICIN. [Concomitant]
     Active Substance: GENTAMICIN
  15. AMOXICILLIN. [Concomitant]
     Active Substance: AMOXICILLIN

REACTIONS (3)
  - Large intestine perforation [Fatal]
  - Abdominal pain [Fatal]
  - Dyspnoea [Recovering/Resolving]

NARRATIVE: CASE EVENT DATE: 20200419
